FAERS Safety Report 5411410-8 (Version None)
Quarter: 2007Q3

REPORT INFORMATION
  Report Type: 
  Country: None (occurrence: None)
  Receive Date: 20070810
  Receipt Date: 20070801
  Transmission Date: 20080115
  Serious: Yes (Hospitalization)
  Sender: FDA-Public Use
  Company Number: JP-ASTRAZENECA-2007AP04640

PATIENT
  Age: 50 Year
  Sex: Male

DRUGS (6)
  1. OMEPRAZOLE [Suspect]
     Indication: DUODENAL ULCER
     Route: 048
     Dates: start: 20070722, end: 20070722
  2. OMEPRAZOLE [Suspect]
     Indication: HELICOBACTER INFECTION
     Route: 048
     Dates: start: 20070722, end: 20070722
  3. CLARITHROMYCIN [Suspect]
     Indication: DUODENAL ULCER
     Route: 048
     Dates: start: 20070722, end: 20070722
  4. CLARITHROMYCIN [Suspect]
     Indication: HELICOBACTER INFECTION
     Route: 048
     Dates: start: 20070722, end: 20070722
  5. AMOXICILLIN TRIHYDRATE [Suspect]
     Indication: DUODENAL ULCER
     Route: 048
     Dates: start: 20070722, end: 20070722
  6. AMOXICILLIN TRIHYDRATE [Suspect]
     Indication: HELICOBACTER INFECTION
     Route: 048
     Dates: start: 20070722, end: 20070722

REACTIONS (1)
  - DERMATITIS ALLERGIC [None]
